FAERS Safety Report 12592788 (Version 2)
Quarter: 2016Q4

REPORT INFORMATION
  Report Type: Spontaneous
  Country: US (occurrence: US)
  Receive Date: 20160726
  Receipt Date: 20161028
  Transmission Date: 20170207
  Serious: Yes (Hospitalization)
  Sender: FDA-Public Use
  Company Number: US-009507513-1607USA010438

PATIENT
  Age: 62 Year
  Sex: Male

DRUGS (8)
  1. TRIAMCINOLONE ACETONIDE. [Concomitant]
     Active Substance: TRIAMCINOLONE ACETONIDE
  2. INTRON A [Suspect]
     Active Substance: INTERFERON ALFA-2B
     Dosage: 5 MU-MON-FRI, QD
     Route: 058
  3. INTRON A [Suspect]
     Active Substance: INTERFERON ALFA-2B
     Indication: MYCOSIS FUNGOIDES
     Dosage: 25MMIU (2.5 ML VIAL) MON-FRI
     Route: 058
     Dates: start: 20160707
  4. LISINOPRIL. [Concomitant]
     Active Substance: LISINOPRIL
  5. CALCIFORTE VITAMIN D3 [Concomitant]
  6. XYZAL [Concomitant]
     Active Substance: LEVOCETIRIZINE DIHYDROCHLORIDE
  7. CARVEDILOL. [Concomitant]
     Active Substance: CARVEDILOL
  8. LEVOTHYROXINE SODIUM. [Concomitant]
     Active Substance: LEVOTHYROXINE SODIUM

REACTIONS (3)
  - Hypotension [Unknown]
  - Hypotension [Recovered/Resolved]
  - Dehydration [Recovered/Resolved]

NARRATIVE: CASE EVENT DATE: 20160714
